FAERS Safety Report 10540952 (Version 2)
Quarter: 2014Q4

REPORT INFORMATION
  Report Type: Spontaneous
  Country: US (occurrence: None)
  Receive Date: 20141010
  Receipt Date: 20141205
  Transmission Date: 20150529
  Serious: Yes (Other)
  Sender: FDA-Public Use
  Company Number: 163-POMAL-14061054

PATIENT
  Age: 80 Year
  Sex: Female
  Weight: 61.2 kg

DRUGS (12)
  1. VITAMIN B12 [Concomitant]
     Active Substance: CYANOCOBALAMIN
  2. BENADRYL (DIPHENHYDRAMINE) [Concomitant]
  3. LOMOTIL (ATROPINE SULFATE, DIPHENOXYLATE HYDROCHLORIDE) [Concomitant]
  4. POMALYST [Suspect]
     Active Substance: POMALIDOMIDE
     Indication: PLASMA CELL MYELOMA
     Dosage: 3 MG, 21 IN 21 D, PO
     Route: 048
     Dates: start: 20140601
  5. ATIVAN [Concomitant]
     Active Substance: LORAZEPAM
  6. ECHINACEA (ECHINACEA ANGUSTIFOLIA ROT, ECHINACEA PURPUREA FRESH HERB DRY JUICE, OLEA EUROPAEA LEAF, ASTRAGALUS PROPINQUUS ROOT)) [Concomitant]
  7. PROPRANOLOL [Concomitant]
     Active Substance: PROPRANOLOL\PROPRANOLOL HYDROCHLORIDE
  8. DESONIDE (DESONIDE) (CREAM) [Concomitant]
  9. ZOMETA [Concomitant]
     Active Substance: ZOLEDRONIC ACID
  10. PROBIOTIC (BIFIDOBACTERIUM LACTIS) [Concomitant]
  11. OMEPRAZOLE. [Concomitant]
     Active Substance: OMEPRAZOLE
  12. ASPIRIN. [Concomitant]
     Active Substance: ASPIRIN

REACTIONS (3)
  - Sinus disorder [None]
  - Cytopenia [None]
  - Rash pruritic [None]

NARRATIVE: CASE EVENT DATE: 2014
